FAERS Safety Report 6318438-4 (Version None)
Quarter: 2009Q3

REPORT INFORMATION
  Report Type: 
  Country: None (occurrence: None)
  Receive Date: 20090819
  Receipt Date: 20090807
  Transmission Date: 20100115
  Serious: Yes (Hospitalization)
  Sender: FDA-Public Use
  Company Number: 2009PL000249

PATIENT
  Age: 27 Year
  Sex: Female
  Weight: 122.4712 kg

DRUGS (13)
  1. LOTRONEX [Suspect]
     Indication: DIARRHOEA
     Dosage: 1 MG; BID
     Dates: start: 20090619, end: 20090709
  2. PAIN MEDICATION [Concomitant]
  3. PROZAC [Concomitant]
  4. CYMBALTA [Concomitant]
  5. VALIUM [Concomitant]
  6. NORCO [Concomitant]
  7. GLUCOPHAGE [Concomitant]
  8. JANUVIA [Concomitant]
  9. PRINIVIL [Concomitant]
  10. BENTYL [Concomitant]
  11. BIRTH CONTROL [Concomitant]
  12. PRILOSEC [Concomitant]
  13. LOMOTIL [Concomitant]

REACTIONS (6)
  - ANTIGLIADIN ANTIBODY POSITIVE [None]
  - COLITIS [None]
  - FAECALOMA [None]
  - INSOMNIA [None]
  - OBSTRUCTION [None]
  - WEIGHT INCREASED [None]
